FAERS Safety Report 8553872-3 (Version None)
Quarter: 2012Q3

REPORT INFORMATION
  Report Type: 
  Country: None (occurrence: None)
  Receive Date: 20120731
  Receipt Date: 20120720
  Transmission Date: 20120928
  Serious: Yes (Hospitalization)
  Sender: FDA-Public Use
  Company Number: US-BAYER-2012-024448

PATIENT
  Age: 43 Year
  Sex: Female
  Weight: 70.295 kg

DRUGS (17)
  1. CYCLOBENZAPRINE [Concomitant]
     Dosage: 10 MG, UNK
     Dates: start: 20090418, end: 20090520
  2. HYDROCHLOROTHIAZIDE [Concomitant]
     Indication: HYPERTENSION
     Dosage: 25 MG, DAILY
     Dates: start: 20080601, end: 20100801
  3. CHERATUSSIN AC [Concomitant]
     Dosage: UNK
     Dates: start: 20090511
  4. TRAZODONE HYDROCHLORIDE [Concomitant]
     Dosage: 150 MG, UNK
     Dates: start: 20090401
  5. YAZ [Suspect]
     Indication: MENORRHAGIA
  6. VENLAFAXINE HYDROCHOLRIDE [Concomitant]
     Indication: DEPRESSION
     Dosage: UNK
     Dates: start: 20080601
  7. ACETAMINOPHEN AND OXYCODONE HCL [Concomitant]
     Dosage: UNK
     Dates: start: 20090325
  8. ADDERALL XR 10 [Concomitant]
     Indication: ATTENTION DEFICIT/HYPERACTIVITY DISORDER
     Dosage: 20 MG, DAILY
     Dates: start: 20081101, end: 20090601
  9. DIAZEPAM TAB [Concomitant]
     Dosage: 5 MG, UNK
     Dates: start: 20090503
  10. CIPROFLAXACIN [Concomitant]
     Dosage: 500 MG, UNK
     Dates: start: 20090503
  11. HYDROCODONE W/IBUPROFEN [Concomitant]
     Dosage: 7.5 MG /200 MG
     Dates: start: 20090520
  12. YAZ [Suspect]
     Indication: PREMENSTRUAL SYNDROME
     Dosage: UNK
     Dates: start: 20081201, end: 20090601
  13. BUSPIRONE HCL [Concomitant]
     Dosage: 15 MG, UNK
     Dates: start: 20090501
  14. IBUPROFEN [Concomitant]
     Dosage: 800 MG, UNK
     Dates: start: 20090503
  15. POTASSIUM [Concomitant]
  16. NABUMETONE [Concomitant]
     Dosage: 750 MG, UNK
     Dates: start: 20090326
  17. EFFEXOR XR [Concomitant]
     Indication: DEPRESSION
     Dosage: 150 MG, DAILY

REACTIONS (15)
  - PULMONARY EMBOLISM [None]
  - ANXIETY [None]
  - EMOTIONAL DISTRESS [None]
  - HYPOAESTHESIA [None]
  - DEEP VEIN THROMBOSIS [None]
  - NON-CARDIAC CHEST PAIN [None]
  - PAIN [None]
  - CHEST PAIN [None]
  - PRESYNCOPE [None]
  - PULMONARY FIBROSIS [None]
  - DYSPNOEA [None]
  - GENERAL PHYSICAL HEALTH DETERIORATION [None]
  - CHEST DISCOMFORT [None]
  - PALPITATIONS [None]
  - INJURY [None]
